FAERS Safety Report 7860072-9 (Version None)
Quarter: 2011Q4

REPORT INFORMATION
  Report Type: 
  Country: None (occurrence: None)
  Receive Date: 20111025
  Receipt Date: 20111013
  Transmission Date: 20120403
  Serious: Yes (Hospitalization, Other)
  Sender: FDA-Public Use
  Company Number: 2011SP032020

PATIENT
  Age: 24 Year
  Sex: Female
  Weight: 102.0593 kg

DRUGS (4)
  1. NUVARING [Suspect]
     Indication: MENORRHAGIA
     Dosage: VAG
     Route: 067
     Dates: start: 20050101
  2. NUVARING [Suspect]
     Indication: CONTRACEPTION
     Dosage: VAG
     Route: 067
     Dates: start: 20050101
  3. NUVARING [Suspect]
     Indication: MENORRHAGIA
     Dosage: VAG
     Route: 067
     Dates: start: 20100527, end: 20100728
  4. NUVARING [Suspect]
     Indication: CONTRACEPTION
     Dosage: VAG
     Route: 067
     Dates: start: 20100527, end: 20100728

REACTIONS (25)
  - PULMONARY INFARCTION [None]
  - ATELECTASIS [None]
  - INAPPROPRIATE SCHEDULE OF DRUG ADMINISTRATION [None]
  - LUNG INFILTRATION [None]
  - MENTAL DISORDER [None]
  - ROAD TRAFFIC ACCIDENT [None]
  - PREGNANCY [None]
  - AFFECTIVE DISORDER [None]
  - CARDIAC MURMUR [None]
  - PAIN [None]
  - SUBCHORIONIC HAEMORRHAGE [None]
  - FEELING ABNORMAL [None]
  - HAEMOPTYSIS [None]
  - PNEUMONIA [None]
  - VAGINITIS BACTERIAL [None]
  - FATIGUE [None]
  - FIBRIN D DIMER INCREASED [None]
  - STRESS [None]
  - MENSTRUATION IRREGULAR [None]
  - ANTIPHOSPHOLIPID ANTIBODIES POSITIVE [None]
  - MATERNAL EXPOSURE BEFORE PREGNANCY [None]
  - PLEURAL EFFUSION [None]
  - PULMONARY EMBOLISM [None]
  - LUNG NEOPLASM [None]
  - CARDIOLIPIN ANTIBODY POSITIVE [None]
